FAERS Safety Report 7253876-7 (Version None)
Quarter: 2011Q1

REPORT INFORMATION
  Report Type: 
  Country: None (occurrence: None)
  Receive Date: 20110129
  Receipt Date: 20100408
  Transmission Date: 20110831
  Serious: No
  Sender: FDA-Public Use
  Company Number: US-ABBOTT-10P-163-0638583-00

PATIENT
  Sex: Female
  Weight: 72.64 kg

DRUGS (4)
  1. HUMIRA [Suspect]
     Dates: start: 20100401
  2. HUMIRA [Suspect]
     Indication: PSORIASIS
     Dates: start: 20100101
  3. JANUVIA [Concomitant]
     Indication: DIABETES MELLITUS
  4. METFORMAIN (METFORMIN HYDROCHLORIDE) [Concomitant]
     Indication: DIABETES MELLITUS

REACTIONS (1)
  - PSORIASIS [None]
